FAERS Safety Report 26005321 (Version 1)
Quarter: 2025Q4

REPORT INFORMATION
  Report Type: Spontaneous
  Country: US (occurrence: US)
  Receive Date: 20251106
  Receipt Date: 20251106
  Transmission Date: 20260118
  Serious: No
  Sender: MERCK SHARP & DOHME LLC
  Company Number: US-009507513-2341136

PATIENT
  Age: 67 Year
  Sex: Male

DRUGS (4)
  1. PEMBROLIZUMAB [Suspect]
     Active Substance: PEMBROLIZUMAB
     Indication: Recurrent cancer
     Dosage: TIME INTERVAL: CYCLICAL: NEOADJUVANT; CYCLICAL
     Route: 065
  2. PEMBROLIZUMAB [Suspect]
     Active Substance: PEMBROLIZUMAB
     Indication: Recurrent cancer
     Dosage: TIME INTERVAL: CYCLICAL: ADJUVANT PEMBROLIZUMAB, COMPLETING THREE CYCLES
     Route: 065
  3. CARBOPLATIN [Suspect]
     Active Substance: CARBOPLATIN
     Indication: Recurrent cancer
  4. PACLITAXEL [Suspect]
     Active Substance: PACLITAXEL
     Indication: Recurrent cancer

REACTIONS (1)
  - Product use issue [Unknown]
